FAERS Safety Report 7624129-X (Version None)
Quarter: 2011Q3

REPORT INFORMATION
  Report Type: 
  Country: None (occurrence: None)
  Receive Date: 20110720
  Receipt Date: 20110706
  Transmission Date: 20111222
  Serious: Yes (Death, Hospitalization, Other)
  Sender: FDA-Public Use
  Company Number: US-WATSON-2011-10313

PATIENT
  Sex: Female

DRUGS (1)
  1. QUININE SULFATE [Suspect]
     Indication: MUSCLE SPASMS
     Dosage: UNK
     Route: 048
     Dates: start: 20010101

REACTIONS (9)
  - BLOOD DISORDER [None]
  - DEAFNESS [None]
  - RENAL FAILURE [None]
  - HEPATIC FAILURE [None]
  - BLINDNESS [None]
  - OFF LABEL USE [None]
  - DEATH [None]
  - THROMBOCYTOPENIC PURPURA [None]
  - THROMBOCYTOPENIA [None]
